FAERS Safety Report 10249319 (Version 1)
Quarter: 2014Q2

REPORT INFORMATION
  Report Type: Spontaneous
  Country: PT (occurrence: None)
  Receive Date: 20140618
  Receipt Date: 20140618
  Transmission Date: 20141212
  Serious: Yes (Other)
  Sender: FDA-Public Use
  Company Number: SYM-2014-22049

PATIENT
  Sex: Female

DRUGS (4)
  1. FLUOROURACIL (FLUOROURACIL) [Suspect]
     Indication: BREAST CANCER
     Dosage: THREE CYCLES
  2. EPIRUBICIN [Suspect]
     Indication: BREAST CANCER
     Dosage: THREE CYCLES
  3. CYCLOPHOSPHAMIDE (CYCLOPHOSPHAMIDE) [Suspect]
     Indication: BREAST CANCER
     Dosage: THREE CYCLES
  4. DOCETAXEL (DOCETAXEL) [Suspect]
     Indication: BREAST CANCER
     Dosage: THREE CYCLES

REACTIONS (1)
  - Febrile neutropenia [None]
